FAERS Safety Report 7967270-4 (Version None)
Quarter: 2011Q4

REPORT INFORMATION
  Report Type: 
  Country: None (occurrence: None)
  Receive Date: 20111206
  Receipt Date: 20111129
  Transmission Date: 20120403
  Serious: Yes (Hospitalization)
  Sender: FDA-Public Use
  Company Number: AUR-APL-2011-05983

PATIENT
  Age: 3 Year
  Sex: Male

DRUGS (1)
  1. FLUOXETINE [Suspect]
     Indication: PRODUCT USED FOR UNKNOWN INDICATION
     Dosage: (12 DOSAGE FORMS),ORAL
     Route: 048

REACTIONS (14)
  - INAPPROPRIATE ANTIDIURETIC HORMONE SECRETION [None]
  - HAEMODYNAMIC INSTABILITY [None]
  - ACCIDENTAL DRUG INTAKE BY CHILD [None]
  - APHASIA [None]
  - HYPERTENSION [None]
  - TREMOR [None]
  - CONVULSION [None]
  - MYDRIASIS [None]
  - MUSCLE RIGIDITY [None]
  - VOMITING [None]
  - BRAIN OEDEMA [None]
  - TACHYCARDIA [None]
  - HALLUCINATION [None]
  - HYPERHIDROSIS [None]
